FAERS Safety Report 15344943 (Version 1)
Quarter: 2018Q3

REPORT INFORMATION
  Report Type: Report from Study
  Country: US (occurrence: US)
  Receive Date: 20180903
  Receipt Date: 20180903
  Transmission Date: 20181010
  Serious: Yes (Hospitalization, Other)
  Sender: FDA-Public Use
  Company Number: US-AMGEN-USASL2018119544

PATIENT
  Age: 36 Year
  Sex: Female

DRUGS (1)
  1. ENBREL [Suspect]
     Active Substance: ETANERCEPT
     Indication: RHEUMATOID ARTHRITIS
     Dosage: 50 MG, QWK
     Route: 065

REACTIONS (6)
  - Anal incontinence [Unknown]
  - Paraesthesia [Unknown]
  - Accident [Unknown]
  - Hypoaesthesia [Unknown]
  - Abscess intestinal [Unknown]
  - Spinal cord abscess [Unknown]

NARRATIVE: CASE EVENT DATE: 20180819
